FAERS Safety Report 9671801 (Version 1)
Quarter: 2013Q4

REPORT INFORMATION
  Report Type: Spontaneous
  Country: US (occurrence: None)
  Receive Date: 20131105
  Receipt Date: 20131105
  Transmission Date: 20140711
  Serious: Yes (Other)
  Sender: FDA-Public Use
  Company Number: None

PATIENT
  Age: 26 Year
  Sex: Female
  Weight: 80.9 kg

DRUGS (3)
  1. MARCAINE SPINAL [Suspect]
     Indication: SPINAL ANAESTHESIA
     Route: 008
     Dates: start: 20131014, end: 20131014
  2. FENTANYL [Concomitant]
  3. MORPHINE [Concomitant]

REACTIONS (4)
  - Drug ineffective [None]
  - Inadequate analgesia [None]
  - Uterine disorder [None]
  - Discomfort [None]
